FAERS Safety Report 8633409 (Version 4)
Quarter: 2015Q1

REPORT INFORMATION
  Report Type: Report from Study
  Country: CA (occurrence: CA)
  Receive Date: 20120625
  Receipt Date: 20150225
  Transmission Date: 20150721
  Serious: Yes (Other)
  Sender: FDA-Public Use
  Company Number: CA-ROCHE-1079378

PATIENT
  Age: 50 Year
  Sex: Male
  Weight: 62.1 kg

DRUGS (12)
  1. ACLASTA [Concomitant]
     Active Substance: ZOLEDRONIC ACID
  2. CELEBREX [Concomitant]
     Active Substance: CELECOXIB
  3. VOLTAREN [Concomitant]
     Active Substance: DICLOFENAC SODIUM
  4. ACETAMINOPHEN. [Concomitant]
     Active Substance: ACETAMINOPHEN
     Route: 048
     Dates: start: 20100111
  5. METHYLPREDNISOLONE. [Concomitant]
     Active Substance: METHYLPREDNISOLONE
     Route: 042
     Dates: start: 20100111
  6. CAL-D3 [Concomitant]
  7. VIAGRA [Concomitant]
     Active Substance: SILDENAFIL CITRATE
  8. EURO-FOLIC [Concomitant]
  9. PANTOLOC [Concomitant]
     Active Substance: PANTOPRAZOLE SODIUM
  10. DIPHENHYDRAMINE HCL [Concomitant]
     Active Substance: DIPHENHYDRAMINE HYDROCHLORIDE
     Route: 048
     Dates: start: 20100111
  11. RITUXAN [Suspect]
     Active Substance: RITUXIMAB
     Indication: RHEUMATOID ARTHRITIS
     Route: 042
     Dates: start: 20090110
  12. METHOTREXATE [Concomitant]
     Active Substance: METHOTREXATE

REACTIONS (8)
  - Skull fracture [Unknown]
  - Rheumatoid arthritis [Not Recovered/Not Resolved]
  - Weight increased [Unknown]
  - Influenza [Unknown]
  - Arthralgia [Unknown]
  - Drug ineffective [Unknown]
  - Knee arthroplasty [Unknown]
  - Road traffic accident [Unknown]

NARRATIVE: CASE EVENT DATE: 20120518
